FAERS Safety Report 8310229 (Version 3)
Quarter: 2012Q4

REPORT INFORMATION
  Report Type: Report from Study
  Country: FR (occurrence: FR)
  Receive Date: 20111223
  Receipt Date: 20121022
  Transmission Date: 20130627
  Serious: Yes (Other)
  Sender: FDA-Public Use
  Company Number: FR-ROCHE-1024236

PATIENT
  Age: 56 Year
  Sex: Female
  Weight: 45 kg

DRUGS (5)
  1. RIBAVIRIN [Suspect]
     Indication: HEPATITIS C
     Route: 048
     Dates: start: 20110204, end: 20110526
  2. BI 207127 [Suspect]
     Indication: HEPATITIS C
     Route: 048
     Dates: start: 20110204, end: 20110526
  3. BI 201335 [Suspect]
     Indication: HEPATITIS C
     Route: 048
     Dates: start: 20110204, end: 20110526
  4. ANAFRANIL [Concomitant]
     Route: 048
     Dates: start: 2003
  5. MOTILIUM (FRANCE) [Concomitant]
     Route: 048
     Dates: start: 20110303, end: 20110520

REACTIONS (2)
  - Toxic skin eruption [Recovered/Resolved]
  - Jaundice [Recovered/Resolved]
